FAERS Safety Report 7556497-1 (Version None)
Quarter: 2011Q2

REPORT INFORMATION
  Report Type: 
  Country: None (occurrence: None)
  Receive Date: 20110620
  Receipt Date: 20110606
  Transmission Date: 20111010
  Serious: Yes (Death, Life-Threatening, Other)
  Sender: FDA-Public Use
  Company Number: US-JNJFOC-20060904587

PATIENT
  Sex: Male

DRUGS (8)
  1. LOVENOX [Suspect]
     Indication: PRODUCT USED FOR UNKNOWN INDICATION
  2. STEROIDS [Concomitant]
  3. IMURAN [Suspect]
     Dates: start: 20011201, end: 20021114
  4. REMICADE [Suspect]
     Indication: COLITIS ULCERATIVE
     Dosage: SINGLE INFUSION
     Route: 042
     Dates: start: 20011222, end: 20011222
  5. LOW MOLECULAR WEIGHT HEPARIN [Concomitant]
     Indication: VENA CAVA THROMBOSIS
  6. ASACOL [Concomitant]
     Indication: COLITIS
  7. IMURAN [Suspect]
     Indication: COLITIS
     Dates: start: 20021115
  8. LOW MOLECULAR WEIGHT HEPARIN [Concomitant]
     Indication: ANTIPHOSPHOLIPID SYNDROME

REACTIONS (8)
  - HEPATOSPLENIC T-CELL LYMPHOMA [None]
  - HYDROCEPHALUS [None]
  - AQUEDUCTAL STENOSIS [None]
  - ANTIPHOSPHOLIPID SYNDROME [None]
  - GRAFT VERSUS HOST DISEASE [None]
  - PULMONARY EMBOLISM [None]
  - NUCLEAR MAGNETIC RESONANCE IMAGING BRAIN ABNORMAL [None]
  - HYPERTENSION [None]
